FAERS Safety Report 22641884 (Version 1)
Quarter: 2023Q2

REPORT INFORMATION
  Report Type: Spontaneous
  Country: US (occurrence: None)
  Receive Date: 20230623
  Receipt Date: 20230623
  Transmission Date: 20230722
  Serious: Yes (Hospitalization)
  Sender: FDA-Public Use
  Company Number: None

PATIENT
  Sex: Male

DRUGS (18)
  1. MEKINIST [Suspect]
     Active Substance: TRAMETINIB DIMETHYL SULFOXIDE
     Indication: Malignant melanoma
     Dosage: FREQUENCY : DAILY;?
     Route: 048
  2. TAFINLAR [Suspect]
     Active Substance: DABRAFENIB MESYLATE
     Indication: Malignant melanoma
  3. ALPHAGAN P [Concomitant]
     Active Substance: BRIMONIDINE TARTRATE
  4. ASPIRIN [Concomitant]
     Active Substance: ASPIRIN
  5. DABRAFENIB [Concomitant]
     Active Substance: DABRAFENIB
  6. DIGOXIN [Concomitant]
     Active Substance: DIGOXIN
  7. FERROUS GLUCONATE [Concomitant]
     Active Substance: FERROUS GLUCONATE
  8. FINASTERIDE [Concomitant]
     Active Substance: FINASTERIDE
  9. FLUTICASONE FUROATE [Concomitant]
     Active Substance: FLUTICASONE FUROATE
  10. FOLIC ACID [Concomitant]
     Active Substance: FOLIC ACID
  11. LASIX [Concomitant]
     Active Substance: FUROSEMIDE
  12. MAGNESIUM GLUCONATE [Concomitant]
     Active Substance: MAGNESIUM GLUCONATE
  13. METOPROLOL [Concomitant]
     Active Substance: METOPROLOL
  14. TAFINLAR [Concomitant]
     Active Substance: DABRAFENIB MESYLATE
  15. TAMSULOSIN [Concomitant]
     Active Substance: TAMSULOSIN
  16. TRAMETINIB [Concomitant]
     Active Substance: TRAMETINIB
  17. VIT B-12 [Concomitant]
  18. XARELTO [Concomitant]
     Active Substance: RIVAROXABAN

REACTIONS (3)
  - Pneumonia [None]
  - Mental impairment [None]
  - General physical health deterioration [None]
